FAERS Safety Report 9117391 (Version 1)
Quarter: 2013Q1

REPORT INFORMATION
  Report Type: Report from Study
  Country: US (occurrence: US)
  Receive Date: 20130225
  Receipt Date: 20130225
  Transmission Date: 20140127
  Serious: Yes (Other)
  Sender: FDA-Public Use
  Company Number: US-JNJFOC-20130210087

PATIENT
  Sex: 0

DRUGS (1)
  1. SIMPONI [Suspect]
     Indication: PRODUCT USED FOR UNKNOWN INDICATION
     Route: 065

REACTIONS (6)
  - Activities of daily living impaired [Unknown]
  - Hyperhidrosis [Unknown]
  - Muscle spasms [Unknown]
  - Pain [Unknown]
  - Inflammation [Unknown]
  - Laboratory test abnormal [Unknown]
